FAERS Safety Report 4621580-7 (Version None)
Quarter: 2005Q1

REPORT INFORMATION
  Report Type: 
  Country: None (occurrence: None)
  Receive Date: 20050328
  Receipt Date: 20040426
  Transmission Date: 20050727
  Serious: No
  Sender: FDA-Public Use
  Company Number: 7929

PATIENT
  Age: 24 Year
  Sex: Male

DRUGS (3)
  1. FLUPHENAZINE [Suspect]
     Indication: SCHIZOPHRENIA
     Dosage: 6 MG
     Dates: start: 19981125, end: 19981211
  2. CLOZAPINE [Suspect]
     Dosage: 37.5 MG
  3. DIAZEPAM [Concomitant]

REACTIONS (2)
  - DRUG INTERACTION [None]
  - THROMBOCYTOPENIA [None]
